FAERS Safety Report 15484025 (Version 1)
Quarter: 2018Q4

REPORT INFORMATION
  Report Type: Spontaneous
  Country: ZA (occurrence: ZA)
  Receive Date: 20181010
  Receipt Date: 20181010
  Transmission Date: 20190205
  Serious: Yes (Hospitalization, Other)
  Sender: FDA-Public Use
  Company Number: ZA-PFIZER INC-2018407015

PATIENT
  Age: 64 Year
  Sex: Female

DRUGS (7)
  1. TRUSTAN [Suspect]
     Active Substance: ESOMEPRAZOLE
     Dosage: 40 MG, UNK
  2. FEMIGEL [ESTRADIOL] [Suspect]
     Active Substance: ESTRADIOL
     Dosage: 1.5 MG, UNK
  3. ADCO-SIMVASTATIN [Suspect]
     Active Substance: SIMVASTATIN
     Dosage: 20 MG, UNK
  4. SYNALEVE (ACETAMINOPHEN\CODEINE PHOSPHATE\MEPROBAMATE) [Suspect]
     Active Substance: ACETAMINOPHEN\CODEINE PHOSPHATE\MEPROBAMATE
     Dosage: UNK
  5. ZANIDIP [Suspect]
     Active Substance: LERCANIDIPINE HYDROCHLORIDE
     Dosage: 20 MG, UNK
  6. PREMARIN [Suspect]
     Active Substance: ESTROGENS, CONJUGATED
     Dosage: 0.625 MG, UNK
  7. ELTROXIN [Suspect]
     Active Substance: LEVOTHYROXINE
     Dosage: 25 MCG, UNK

REACTIONS (2)
  - Back disorder [Unknown]
  - Headache [Unknown]
